FAERS Safety Report 9596369 (Version 1)
Quarter: 2013Q4

REPORT INFORMATION
  Report Type: Spontaneous
  Country: US (occurrence: US)
  Receive Date: 20131004
  Receipt Date: 20131004
  Transmission Date: 20140711
  Serious: Yes (Other)
  Sender: FDA-Public Use
  Company Number: US-BAXTER-2013BAX038575

PATIENT
  Age: 32 Year
  Sex: Female

DRUGS (4)
  1. SUPRANE (DESFLURANE, USP) [Suspect]
     Indication: MAINTENANCE OF ANAESTHESIA
     Dosage: 5% TO 6%
     Route: 065
  2. PROPOFOL [Suspect]
     Indication: GENERAL ANAESTHESIA
     Route: 065
  3. FENTANYL [Suspect]
     Indication: GENERAL ANAESTHESIA
     Route: 065
  4. ROCURONIUM [Suspect]
     Indication: GENERAL ANAESTHESIA
     Route: 065

REACTIONS (1)
  - Hyperthermia malignant [Recovered/Resolved]
